FAERS Safety Report 7113484-5 (Version None)
Quarter: 2010Q4

REPORT INFORMATION
  Report Type: 
  Country: None (occurrence: None)
  Receive Date: 20101119
  Receipt Date: 20101115
  Transmission Date: 20110411
  Serious: Yes (Death)
  Sender: FDA-Public Use
  Company Number: TH-SANOFI-AVENTIS-2010SA069187

PATIENT
  Age: 61 Year
  Sex: Female
  Weight: 63.5 kg

DRUGS (6)
  1. OXALIPLATIN [Suspect]
     Route: 042
     Dates: start: 20101110, end: 20101110
  2. OXALIPLATIN [Suspect]
     Route: 042
     Dates: start: 20101111, end: 20101111
  3. FLUOROURACIL [Suspect]
     Route: 040
     Dates: start: 20101110, end: 20101110
  4. FLUOROURACIL [Suspect]
     Route: 041
     Dates: start: 20101110, end: 20101110
  5. LEUCOVORIN CALCIUM [Suspect]
     Route: 042
     Dates: start: 20101110, end: 20101110
  6. ONSIA [Concomitant]
     Indication: ANTIEMETIC SUPPORTIVE CARE
     Route: 042
     Dates: start: 20101110, end: 20101110

REACTIONS (5)
  - APNOEA [None]
  - CHEST PAIN [None]
  - CIRCULATORY COLLAPSE [None]
  - LOSS OF CONSCIOUSNESS [None]
  - PALPITATIONS [None]
